FAERS Safety Report 24530961 (Version 2)
Quarter: 2024Q4

REPORT INFORMATION
  Report Type: Spontaneous
  Country: US (occurrence: US)
  Receive Date: 20241021
  Receipt Date: 20241029
  Transmission Date: 20250115
  Serious: No
  Sender: ROCHE
  Company Number: US-ROCHE-10000108138

PATIENT
  Sex: Female

DRUGS (3)
  1. ACTEMRA ACTPEN [Suspect]
     Active Substance: TOCILIZUMAB
     Indication: Rheumatoid arthritis
     Route: 058
  2. SIMPONI [Concomitant]
     Active Substance: GOLIMUMAB
  3. ENBREL [Concomitant]
     Active Substance: ETANERCEPT

REACTIONS (2)
  - Gastrointestinal disorder [Unknown]
  - Gastrooesophageal reflux disease [Unknown]
